FAERS Safety Report 8869968 (Version 1)
Quarter: 2012Q4

REPORT INFORMATION
  Report Type: Spontaneous
  Country: US (occurrence: None)
  Receive Date: 20121025
  Receipt Date: 20121025
  Transmission Date: 20130627
  Serious: Yes (Other)
  Sender: FDA-Public Use
  Company Number: None

PATIENT
  Age: 90 Year
  Sex: Female
  Weight: 46.27 kg

DRUGS (1)
  1. PROLIA [Suspect]
     Indication: BONE DISORDER
     Dates: start: 20120209, end: 20120809

REACTIONS (7)
  - Rash erythematous [None]
  - Pruritus [None]
  - Skin exfoliation [None]
  - Mouth injury [None]
  - Burning sensation [None]
  - Musculoskeletal pain [None]
  - Pain in extremity [None]
